FAERS Safety Report 25263964 (Version 3)
Quarter: 2025Q3

REPORT INFORMATION
  Report Type: Spontaneous
  Country: US (occurrence: US)
  Receive Date: 20250502
  Receipt Date: 20250909
  Transmission Date: 20251021
  Serious: Yes (Hospitalization)
  Sender: DOMPE FARMACEUTICI
  Company Number: US-FARMAPROD-202503-0800

PATIENT
  Sex: Female

DRUGS (27)
  1. OXERVATE [Suspect]
     Active Substance: CENEGERMIN-BKBJ
     Indication: Neurotrophic keratopathy
     Route: 047
     Dates: start: 20250213
  2. OXERVATE [Suspect]
     Active Substance: CENEGERMIN-BKBJ
  3. OXERVATE [Suspect]
     Active Substance: CENEGERMIN-BKBJ
  4. VITAMINS [Concomitant]
     Active Substance: VITAMINS
  5. VITAMIN D3 [Concomitant]
     Active Substance: CHOLECALCIFEROL
  6. RANOLAZINE [Concomitant]
     Active Substance: RANOLAZINE
  7. ROPINIROLE HYDROCHLORIDE [Concomitant]
     Active Substance: ROPINIROLE HYDROCHLORIDE
  8. ISOSORBIDE DINITRATE [Concomitant]
     Active Substance: ISOSORBIDE DINITRATE
  9. DULOXETINE HYDROCHLORIDE [Concomitant]
     Active Substance: DULOXETINE HYDROCHLORIDE
  10. ROSUVASTATIN CALCIUM [Concomitant]
     Active Substance: ROSUVASTATIN CALCIUM
  11. CALCITRIOL [Concomitant]
     Active Substance: CALCITRIOL
  12. METOPROLOL SUCCINATE [Concomitant]
     Active Substance: METOPROLOL SUCCINATE
  13. ACETAMINOPHEN\HYDROCODONE [Concomitant]
     Active Substance: ACETAMINOPHEN\HYDROCODONE
  14. OMEPRAZOLE [Concomitant]
     Active Substance: OMEPRAZOLE
  15. PROLIA [Concomitant]
     Active Substance: DENOSUMAB
  16. NOVOLIN 70/30 [Concomitant]
     Active Substance: INSULIN HUMAN
  17. ELIQUIS [Concomitant]
     Active Substance: APIXABAN
  18. LOSARTAN POTASSIUM [Concomitant]
     Active Substance: LOSARTAN POTASSIUM
  19. CLOPIDOGREL [Concomitant]
     Active Substance: CLOPIDOGREL BISULFATE
  20. RESTASIS [Concomitant]
     Active Substance: CYCLOSPORINE
  21. AMLODIPINE BESYLATE [Concomitant]
     Active Substance: AMLODIPINE BESYLATE
  22. FUROSEMIDE [Concomitant]
     Active Substance: FUROSEMIDE
  23. HYDRALAZINE [Concomitant]
     Active Substance: HYDRALAZINE HYDROCHLORIDE
  24. LOPRESSOR [Concomitant]
     Active Substance: METOPROLOL TARTRATE
  25. AMIODARONE [Concomitant]
     Active Substance: AMIODARONE
  26. GABAPENTIN [Concomitant]
     Active Substance: GABAPENTIN
  27. NOVOLOG [Concomitant]
     Active Substance: INSULIN ASPART

REACTIONS (5)
  - Cholecystectomy [Unknown]
  - Fall [Unknown]
  - Head injury [Unknown]
  - Eye pain [Not Recovered/Not Resolved]
  - Eye pruritus [Unknown]
